FAERS Safety Report 5248486-7 (Version None)
Quarter: 2007Q1

REPORT INFORMATION
  Report Type: 
  Country: None (occurrence: None)
  Receive Date: 20070227
  Receipt Date: 20070215
  Transmission Date: 20070707
  Serious: Yes (Other)
  Sender: FDA-Public Use
  Company Number: FR-PFIZER INC-2006109692

PATIENT
  Sex: Male

DRUGS (2)
  1. VFEND [Suspect]
     Indication: ASPERGILLOSIS
     Route: 048
  2. VFEND [Suspect]
     Indication: SARCOIDOSIS

REACTIONS (1)
  - RESPIRATORY FAILURE [None]
